FAERS Safety Report 7377736-6 (Version None)
Quarter: 2011Q1

REPORT INFORMATION
  Report Type: 
  Country: None (occurrence: None)
  Receive Date: 20110328
  Receipt Date: 20110317
  Transmission Date: 20110831
  Serious: Yes (Hospitalization, Other)
  Sender: FDA-Public Use
  Company Number: CH-GENZYME-POMP-1000908

PATIENT
  Sex: Female
  Weight: 42 kg

DRUGS (7)
  1. CLEMASTINE FUMARATE [Concomitant]
     Indication: PREMEDICATION
     Dosage: 1 MG, UNK
  2. MABTHERA [Concomitant]
     Indication: NEPHROTIC SYNDROME
     Dosage: UNK UNK, UNK
     Route: 065
     Dates: start: 20100818, end: 20100818
  3. TRIMETHOPRIMUM [Concomitant]
     Indication: NEPHROTIC SYNDROME
     Dosage: 160 MG, 3X/W
     Route: 065
     Dates: start: 20100101
  4. MYOZYME [Suspect]
     Indication: GLYCOGEN STORAGE DISEASE TYPE II
     Dosage: 20 MG/KG, Q2W
     Route: 042
     Dates: start: 20070612
  5. PANTOZOL [Concomitant]
     Indication: PREMEDICATION
     Dosage: 20 MG, UNK
  6. TRIATEC [Concomitant]
     Indication: NEPHROTIC SYNDROME
     Dosage: 2.5 MG, QD
     Route: 065
     Dates: start: 20100101
  7. SULFAMETHOXAZOLE [Concomitant]
     Indication: NEPHROTIC SYNDROME
     Dosage: 800 MG, 3X/W
     Route: 065
     Dates: start: 20100101

REACTIONS (5)
  - GLOMERULONEPHRITIS MEMBRANOUS [None]
  - RASH [None]
  - DYSPEPSIA [None]
  - NEPHROTIC SYNDROME [None]
  - CHILLS [None]
